FAERS Safety Report 16765470 (Version 1)
Quarter: 2019Q3

REPORT INFORMATION
  Report Type: Report from Study
  Country: RU (occurrence: RU)
  Receive Date: 20190903
  Receipt Date: 20190903
  Transmission Date: 20191005
  Serious: Yes (Hospitalization, Other)
  Sender: FDA-Public Use
  Company Number: RU-ASTRAZENECA-2019SF24843

PATIENT
  Age: 68 Year
  Sex: Male
  Weight: 80 kg

DRUGS (1)
  1. BRILINTA [Suspect]
     Active Substance: TICAGRELOR
     Indication: MYOCARDIAL INFARCTION
     Dosage: 2 TIMES A DAY
     Route: 048
     Dates: start: 201805

REACTIONS (5)
  - Off label use [Unknown]
  - Product use issue [Unknown]
  - Rib fracture [Unknown]
  - Pulmonary contusion [Unknown]
  - Fall [Unknown]

NARRATIVE: CASE EVENT DATE: 20190816
